FAERS Safety Report 6134520-9 (Version None)
Quarter: 2009Q1

REPORT INFORMATION
  Report Type: 
  Country: None (occurrence: None)
  Receive Date: 20090327
  Receipt Date: 20090323
  Transmission Date: 20090719
  Serious: Yes (Congenital Anomaly)
  Sender: FDA-Public Use
  Company Number: GB-BRISTOL-MYERS SQUIBB COMPANY-14555767

PATIENT

DRUGS (2)
  1. DASATINIB [Suspect]
     Route: 064
     Dates: start: 20080615, end: 20080715
  2. HYDROXYUREA [Concomitant]

REACTIONS (2)
  - ENCEPHALOCELE [None]
  - SKULL MALFORMATION [None]
